FAERS Safety Report 10534207 (Version 1)
Quarter: 2014Q4

REPORT INFORMATION
  Report Type: Spontaneous
  Country: US (occurrence: None)
  Receive Date: 20141021
  Receipt Date: 20141021
  Transmission Date: 20150529
  Serious: Yes (Hospitalization)
  Sender: FDA-Public Use
  Company Number: None

PATIENT
  Age: 50 Year
  Sex: Male
  Weight: 80.74 kg

DRUGS (2)
  1. TAXOL [Suspect]
     Active Substance: PACLITAXEL
  2. CARBOPLATIN. [Suspect]
     Active Substance: CARBOPLATIN

REACTIONS (8)
  - Febrile neutropenia [None]
  - Platelet count decreased [None]
  - Chest pain [None]
  - Blood magnesium decreased [None]
  - Haemoglobin decreased [None]
  - Pneumonia [None]
  - Blood sodium decreased [None]
  - Dyspnoea exertional [None]

NARRATIVE: CASE EVENT DATE: 20141014
